FAERS Safety Report 7189818-2 (Version None)
Quarter: 2010Q4

REPORT INFORMATION
  Report Type: 
  Country: None (occurrence: None)
  Receive Date: 20101223
  Receipt Date: 20101216
  Transmission Date: 20110411
  Serious: No
  Sender: FDA-Public Use
  Company Number: US-BIOGENIDEC-2010BI044420

PATIENT
  Sex: Female

DRUGS (2)
  1. TYSABRI [Suspect]
     Indication: MULTIPLE SCLEROSIS
     Route: 042
     Dates: start: 20090914
  2. TYSABRI [Suspect]
     Route: 042
     Dates: start: 20070419, end: 20080319

REACTIONS (1)
  - MULTIPLE SCLEROSIS RELAPSE [None]
